FAERS Safety Report 10589522 (Version 1)
Quarter: 2014Q4

REPORT INFORMATION
  Report Type: Spontaneous
  Country: US (occurrence: None)
  Receive Date: 20141114
  Receipt Date: 20141114
  Transmission Date: 20150529
  Serious: Yes (Hospitalization)
  Sender: FDA-Public Use
  Company Number: US-ZYDUS-005500

PATIENT
  Age: 17 Year
  Sex: Female

DRUGS (2)
  1. RISPERIDONE (RISPERIDONE) [Suspect]
     Active Substance: RISPERIDONE
  2. LISINOPRIL (LISINOPRIL) [Suspect]
     Active Substance: LISINOPRIL

REACTIONS (4)
  - Lip swelling [None]
  - Drug hypersensitivity [None]
  - Facial pain [None]
  - Swelling face [None]
